FAERS Safety Report 7645805-9 (Version None)
Quarter: 2011Q3

REPORT INFORMATION
  Report Type: 
  Country: None (occurrence: None)
  Receive Date: 20110729
  Receipt Date: 20110726
  Transmission Date: 20111222
  Serious: Yes (Other)
  Sender: FDA-Public Use
  Company Number: CN-ASTRAZENECA-2011SE44166

PATIENT
  Sex: Female

DRUGS (3)
  1. LIDOCAINE [Suspect]
     Indication: ANAESTHESIA
  2. DIAZEPAM [Suspect]
  3. ATROPINE [Suspect]
     Route: 030

REACTIONS (1)
  - ABORTION INDUCED [None]
